FAERS Safety Report 7384378-5 (Version None)
Quarter: 2011Q1

REPORT INFORMATION
  Report Type: 
  Country: None (occurrence: None)
  Receive Date: 20110330
  Receipt Date: 20110302
  Transmission Date: 20110831
  Serious: Yes (Hospitalization, Other)
  Sender: FDA-Public Use
  Company Number: US-BAYER-201026666NA

PATIENT
  Sex: Female
  Weight: 79.819 kg

DRUGS (2)
  1. YASMIN [Suspect]
     Indication: PREMENSTRUAL SYNDROME
     Route: 048
     Dates: start: 20041101, end: 20050430
  2. YASMIN [Suspect]
     Indication: MENORRHAGIA

REACTIONS (11)
  - CEREBRAL INFARCTION [None]
  - HYPOAESTHESIA [None]
  - DYSPNOEA [None]
  - DEEP VEIN THROMBOSIS [None]
  - HEMIPARESIS [None]
  - HEMICEPHALALGIA [None]
  - EYE PAIN [None]
  - PULMONARY EMBOLISM [None]
  - CHEST PAIN [None]
  - CEREBROVASCULAR ACCIDENT [None]
  - VENA CAVA THROMBOSIS [None]
